FAERS Safety Report 9752441 (Version 6)
Quarter: 2014Q3

REPORT INFORMATION
  Report Type: Report from Study
  Country: US (occurrence: US)
  Receive Date: 20131213
  Receipt Date: 20140701
  Transmission Date: 20150326
  Serious: Yes (Other)
  Sender: FDA-Public Use
  Company Number: US-ROCHE-1252417

PATIENT
  Age: 61 Year
  Sex: Male

DRUGS (2)
  1. PEGASYS [Suspect]
     Active Substance: PEGINTERFERON ALFA-2A
     Indication: CHRONIC HEPATITIS C
     Dosage: PROCLICK AUTOINJECTOR
     Route: 058
     Dates: start: 20130718
  2. RIBAVIRIN. [Suspect]
     Active Substance: RIBAVIRIN
     Indication: CHRONIC HEPATITIS C
     Dosage: DAILY IN TWO DIVIDED DOSES 600/600
     Route: 048
     Dates: start: 20130718

REACTIONS (11)
  - Vascular occlusion [Unknown]
  - Injection site reaction [Unknown]
  - Anxiety [Unknown]
  - Skin discolouration [Unknown]
  - Pruritus [Unknown]
  - Tremor [Unknown]
  - Cold sweat [Unknown]
  - Vertigo [Unknown]
  - Blood glucose decreased [Unknown]
  - Dry skin [Unknown]
  - Therapeutic response decreased [Unknown]

NARRATIVE: CASE EVENT DATE: 20130809
